FAERS Safety Report 7270040-6 (Version None)
Quarter: 2011Q1

REPORT INFORMATION
  Report Type: 
  Country: None (occurrence: None)
  Receive Date: 20110202
  Receipt Date: 20110126
  Transmission Date: 20110831
  Serious: Yes (Hospitalization)
  Sender: FDA-Public Use
  Company Number: GB-PFIZER INC-2011011452

PATIENT
  Age: 69 Year
  Sex: Female

DRUGS (4)
  1. NEURONTIN [Suspect]
     Dosage: UNK
  2. OMEPRAZOLE [Concomitant]
  3. GABAPENTIN [Suspect]
     Dosage: 600 MG, DAILY
  4. GABAPENTIN [Suspect]
     Dosage: 1800 MG, UNK

REACTIONS (6)
  - FACIAL NEURALGIA [None]
  - KNEE OPERATION [None]
  - RASH [None]
  - HYPERSENSITIVITY [None]
  - SKIN BURNING SENSATION [None]
  - ORAL HERPES [None]
